FAERS Safety Report 6631096-4 (Version None)
Quarter: 2010Q1

REPORT INFORMATION
  Report Type: 
  Country: None (occurrence: None)
  Receive Date: 20100311
  Receipt Date: 20100304
  Transmission Date: 20100710
  Serious: Yes (Death, Other)
  Sender: FDA-Public Use
  Company Number: JP-ABBOTT-10P-087-0625533-00

PATIENT
  Age: 79 Year
  Sex: Male
  Weight: 66 kg

DRUGS (7)
  1. LEUPROLIDE ACETATE [Suspect]
     Indication: PROSTATE CANCER STAGE II
     Route: 058
     Dates: start: 20070703, end: 20090501
  2. LEUPROLIDE ACETATE [Suspect]
     Dates: start: 20070605, end: 20070703
  3. FLIVAS [Concomitant]
     Indication: BENIGN PROSTATIC HYPERPLASIA
     Route: 048
     Dates: start: 20040210, end: 20070820
  4. FLIVAS [Concomitant]
     Route: 048
     Dates: start: 20070821
  5. BUP-4 [Concomitant]
     Indication: NEUROGENIC BLADDER
     Route: 048
     Dates: start: 20070501
  6. NORVASC [Concomitant]
     Indication: HYPERTENSION
     Route: 048
  7. DISOPYRAMIDE [Concomitant]
     Indication: ARRHYTHMIA
     Route: 048

REACTIONS (6)
  - BILE DUCT CANCER [None]
  - CHEST DISCOMFORT [None]
  - CONSTIPATION [None]
  - DECREASED APPETITE [None]
  - ECZEMA [None]
  - PANCREATITIS [None]
